FAERS Safety Report 11329474 (Version 1)
Quarter: 2015Q3

REPORT INFORMATION
  Report Type: Spontaneous
  Country: US (occurrence: US)
  Receive Date: 20150803
  Receipt Date: 20150803
  Transmission Date: 20151125
  Serious: Yes (Death, Hospitalization)
  Sender: FDA-Public Use
  Company Number: US-ROCHE-1607130

PATIENT
  Sex: Male
  Weight: 92.16 kg

DRUGS (1)
  1. ESBRIET [Suspect]
     Active Substance: PIRFENIDONE
     Indication: IDIOPATHIC PULMONARY FIBROSIS
     Dosage: 3 CAPSULES OF 267 MG, THREE TIMES IN A DAY
     Route: 048
     Dates: start: 20150529

REACTIONS (2)
  - Death [Fatal]
  - Dyspnoea [Unknown]
